FAERS Safety Report 5347613-0 (Version None)
Quarter: 2007Q2

REPORT INFORMATION
  Report Type: 
  Country: None (occurrence: None)
  Receive Date: 20070604
  Receipt Date: 20070604
  Transmission Date: 20071010
  Serious: Yes (Death, Life-Threatening, Hospitalization)
  Sender: FDA-Public Use
  Company Number: None

PATIENT
  Age: 35 Year
  Sex: Female
  Weight: 58.9676 kg

DRUGS (1)
  1. ORTHO EVRA [Suspect]
     Indication: CONTRACEPTION
     Dosage: PATCH ONE A WEEK TRANSDERMAL
     Route: 062
     Dates: start: 20061029, end: 20061119

REACTIONS (6)
  - CEREBRAL THROMBOSIS [None]
  - INTRACARDIAC THROMBUS [None]
  - PULMONARY THROMBOSIS [None]
  - RENAL DISORDER [None]
  - RESPIRATORY ARREST [None]
  - THROMBOSIS [None]
